FAERS Safety Report 13361058 (Version 1)
Quarter: 2017Q1

REPORT INFORMATION
  Report Type: Spontaneous
  Country: JP (occurrence: JP)
  Receive Date: 20170322
  Receipt Date: 20170322
  Transmission Date: 20170429
  Serious: Yes (Hospitalization, Other)
  Sender: FDA-Public Use
  Company Number: JP-LUNDBECK-DKLU2028207

PATIENT
  Age: 63 Year
  Sex: Female

DRUGS (1)
  1. DOPS [Suspect]
     Active Substance: DROXIDOPA
     Indication: PARKINSONIAN GAIT
     Route: 048

REACTIONS (7)
  - Postrenal failure [Recovering/Resolving]
  - Bedridden [Recovering/Resolving]
  - Depressed level of consciousness [Recovering/Resolving]
  - Urinary retention [Recovering/Resolving]
  - Decreased activity [Recovering/Resolving]
  - Abdominal distension [Recovering/Resolving]
  - Fall [Recovering/Resolving]
